FAERS Safety Report 25780743 (Version 1)
Quarter: 2025Q3

REPORT INFORMATION
  Report Type: Report from Study
  Country: US (occurrence: US)
  Receive Date: 20250909
  Receipt Date: 20250909
  Transmission Date: 20251021
  Serious: Yes (Hospitalization)
  Sender: ALEXION PHARMACEUTICALS
  Company Number: US-AstraZeneca-CH-00946165A

PATIENT
  Age: 62 Year
  Sex: Female

DRUGS (2)
  1. OSIMERTINIB [Suspect]
     Active Substance: OSIMERTINIB
     Indication: Lung carcinoma cell type unspecified stage 0
     Dates: start: 20250709
  2. TEPMETKO [Concomitant]
     Active Substance: TEPOTINIB HYDROCHLORIDE
     Route: 065

REACTIONS (3)
  - Swelling [Unknown]
  - Thrombosis [Unknown]
  - Gait inability [Unknown]
